FAERS Safety Report 6255535-6 (Version None)
Quarter: 2009Q2

REPORT INFORMATION
  Report Type: 
  Country: None (occurrence: None)
  Receive Date: 20090630
  Receipt Date: 20090623
  Transmission Date: 20091009
  Serious: Yes (Death, Other)
  Sender: FDA-Public Use
  Company Number: 2009US002535

PATIENT
  Age: 66 Year
  Sex: Female

DRUGS (2)
  1. AMEVIVE [Suspect]
     Indication: PSORIASIS
     Dosage: 15 MG, WEEKLY, INTRAMUSCULAR
     Route: 030
  2. INFLIXIMAB(INFLIXIMAB) [Suspect]
     Indication: PSORIASIS
     Dosage: 100 MG, WEEKLY,

REACTIONS (11)
  - ADRENAL MASS [None]
  - CARDIO-RESPIRATORY ARREST [None]
  - CD4 LYMPHOCYTES DECREASED [None]
  - COMA [None]
  - CONVULSION [None]
  - HAEMORRHAGE [None]
  - HYPERHIDROSIS [None]
  - NEUTROPHILIA [None]
  - NO THERAPEUTIC RESPONSE [None]
  - NOCARDIOSIS [None]
  - NUCLEAR MAGNETIC RESONANCE IMAGING BRAIN ABNORMAL [None]
